FAERS Safety Report 6295351-2 (Version None)
Quarter: 2009Q3

REPORT INFORMATION
  Report Type: 
  Country: None (occurrence: None)
  Receive Date: 20090803
  Receipt Date: 20090724
  Transmission Date: 20100115
  Serious: Yes (Other)
  Sender: FDA-Public Use
  Company Number: US-JNJCH-2009020232

PATIENT
  Age: 34 Year
  Sex: Female

DRUGS (3)
  1. VISINE-A [Suspect]
     Indication: EYE PRURITUS
     Dosage: TEXT:1 OR 2 DROPS 3X IN 2 HOURS, THEN ONCE
     Route: 047
     Dates: start: 20090724, end: 20090724
  2. LEXAPRO [Concomitant]
     Indication: ANXIETY
     Dosage: TEXT:ONE TABLET DAILY
     Route: 048
  3. LEVONORGESTREL AND ETHINYL ESTRADIOL [Concomitant]
     Indication: CONTRACEPTION
     Dosage: TEXT:ONE TABLET DAILY
     Route: 048

REACTIONS (2)
  - MYDRIASIS [None]
  - VISION BLURRED [None]
